FAERS Safety Report 7688343-X (Version None)
Quarter: 2011Q3

REPORT INFORMATION
  Report Type: 
  Country: None (occurrence: None)
  Receive Date: 20110817
  Receipt Date: 20110811
  Transmission Date: 20111222
  Serious: Yes (Other)
  Sender: FDA-Public Use
  Company Number: US-PFIZER INC-2011169881

PATIENT

DRUGS (1)
  1. ZOLOFT [Suspect]
     Indication: ANXIETY
     Dosage: 25 MG, UNK
     Dates: start: 20080101

REACTIONS (4)
  - ANXIETY [None]
  - DRUG DEPENDENCE [None]
  - PALPITATIONS [None]
  - MUSCLE SPASMS [None]
